FAERS Safety Report 5536538-3 (Version None)
Quarter: 2007Q4

REPORT INFORMATION
  Report Type: 
  Country: None (occurrence: None)
  Receive Date: 20071206
  Receipt Date: 20070926
  Transmission Date: 20080405
  Serious: Yes (Other)
  Sender: FDA-Public Use
  Company Number: US-AMGEN-US238977

PATIENT
  Sex: Male

DRUGS (10)
  1. ENBREL [Suspect]
     Indication: PSORIATIC ARTHROPATHY
     Dates: start: 20050714, end: 20070125
  2. ENBREL [Suspect]
     Indication: PSORIASIS
  3. SORIATANE [Concomitant]
     Dates: end: 20050801
  4. BISOPROLOL FUMARATE AND HYDROCHLOROTHIAZIDE [Concomitant]
  5. CELEBREX [Concomitant]
  6. ACTONEL [Concomitant]
  7. ALBUTEROL [Concomitant]
  8. FLOVENT [Concomitant]
  9. CLOBETASOL PROPIONATE [Concomitant]
  10. CALCIPOTRIENE [Concomitant]

REACTIONS (4)
  - COLON CANCER [None]
  - DERMATITIS PSORIASIFORM [None]
  - GUTTATE PSORIASIS [None]
  - SEBACEOUS HYPERPLASIA [None]
